FAERS Safety Report 15788050 (Version 2)
Quarter: 2019Q3

REPORT INFORMATION
  Report Type: Spontaneous
  Country: IT (occurrence: IT)
  Receive Date: 20190104
  Receipt Date: 20190702
  Transmission Date: 20191004
  Serious: Yes (Other)
  Sender: FDA-Public Use
  Company Number: IT-BRISTOL-MYERS SQUIBB COMPANY-BMS-2018-122753

PATIENT
  Age: 36 Year
  Sex: Female

DRUGS (1)
  1. WARFARIN SODIUM. [Suspect]
     Active Substance: WARFARIN SODIUM
     Indication: PRODUCT USED FOR UNKNOWN INDICATION
     Dosage: UNK
     Route: 065

REACTIONS (4)
  - Renal artery stenosis [Unknown]
  - Carotid artery occlusion [Unknown]
  - Thrombophlebitis superficial [Unknown]
  - Adrenal haemorrhage [Unknown]

NARRATIVE: CASE EVENT DATE: 2005
